FAERS Safety Report 15234025 (Version 3)
Quarter: 2018Q3

REPORT INFORMATION
  Report Type: Report from Study
  Country: NL (occurrence: NL)
  Receive Date: 20180802
  Receipt Date: 20180816
  Transmission Date: 20181010
  Serious: Yes (Other)
  Sender: FDA-Public Use
  Company Number: NL-BEH-2018093308

PATIENT
  Age: 8 Year
  Sex: Male

DRUGS (9)
  1. HIZENTRA [Suspect]
     Active Substance: HUMAN IMMUNOGLOBULIN G
     Dosage: 10 ML, TOT
     Route: 058
     Dates: start: 20180716, end: 20180716
  2. HIZENTRA [Suspect]
     Active Substance: HUMAN IMMUNOGLOBULIN G
     Indication: MUSCLE DISORDER
     Dosage: 10 ML, TOT
     Route: 058
     Dates: start: 20180709, end: 20180709
  3. HIZENTRA [Suspect]
     Active Substance: HUMAN IMMUNOGLOBULIN G
     Indication: IMMUNODEFICIENCY COMMON VARIABLE
     Dosage: 3 G, QW
     Route: 058
     Dates: start: 20180709, end: 20180729
  4. HIZENTRA [Suspect]
     Active Substance: HUMAN IMMUNOGLOBULIN G
     Dosage: 5 ML, TOT
     Route: 058
     Dates: start: 20180709, end: 20180709
  5. HIZENTRA [Suspect]
     Active Substance: HUMAN IMMUNOGLOBULIN G
     Dosage: 5 ML, TOT
     Route: 058
     Dates: start: 20180723, end: 20180723
  6. HIZENTRA [Suspect]
     Active Substance: HUMAN IMMUNOGLOBULIN G
     Dosage: 5 ML, TOT
     Route: 058
     Dates: start: 20180729, end: 20180729
  7. HIZENTRA [Suspect]
     Active Substance: HUMAN IMMUNOGLOBULIN G
     Dosage: 5 ML, TOT
     Route: 058
     Dates: start: 20180716, end: 20180716
  8. HIZENTRA [Suspect]
     Active Substance: HUMAN IMMUNOGLOBULIN G
     Dosage: 10 ML, TOT
     Route: 058
     Dates: start: 20180723, end: 20180723
  9. HIZENTRA [Suspect]
     Active Substance: HUMAN IMMUNOGLOBULIN G
     Dosage: 10 ML, TOT
     Route: 058
     Dates: start: 20180729, end: 20180729

REACTIONS (10)
  - Headache [Recovered/Resolved]
  - Nausea [Recovered/Resolved]
  - Muscle contractions involuntary [Recovered/Resolved]
  - Pain in extremity [Recovered/Resolved]
  - Nausea [Recovered/Resolved]
  - Pain in extremity [Recovered/Resolved]
  - Nausea [Recovered/Resolved]
  - Headache [Recovered/Resolved]
  - Pain in extremity [Recovered/Resolved]
  - Muscle disorder [Recovered/Resolved]

NARRATIVE: CASE EVENT DATE: 20180709
